FAERS Safety Report 24613911 (Version 1)
Quarter: 2024Q4

REPORT INFORMATION
  Report Type: Spontaneous
  Country: US (occurrence: None)
  Receive Date: 20241113
  Receipt Date: 20241113
  Transmission Date: 20250115
  Serious: No
  Sender: Public
  Company Number: None

PATIENT
  Age: 50 Year
  Sex: Female
  Weight: 99 kg

DRUGS (6)
  1. DEFINITY [Suspect]
     Active Substance: PERFLUTREN
     Indication: Echocardiogram
     Dates: start: 20241112
  2. LISINOPRIL [Concomitant]
     Active Substance: LISINOPRIL
  3. ALPRAZOLAM [Concomitant]
     Active Substance: ALPRAZOLAM
  4. kirkland allerclear [Concomitant]
  5. otc acid controller [Concomitant]
  6. MELATONIN [Concomitant]
     Active Substance: MELATONIN

REACTIONS (10)
  - Feeling abnormal [None]
  - Feeling hot [None]
  - Paraesthesia [None]
  - Ear disorder [None]
  - Nausea [None]
  - Abdominal pain [None]
  - Abdominal pain [None]
  - Dyschezia [None]
  - Flatulence [None]
  - Abdominal distension [None]

NARRATIVE: CASE EVENT DATE: 20241112
